FAERS Safety Report 7292005-0 (Version None)
Quarter: 2011Q1

REPORT INFORMATION
  Report Type: 
  Country: None (occurrence: None)
  Receive Date: 20110215
  Receipt Date: 20110204
  Transmission Date: 20110831
  Serious: Yes (Hospitalization)
  Sender: FDA-Public Use
  Company Number: US-BIOGENIDEC-2010BI039889

PATIENT
  Age: 44 Year
  Sex: Male

DRUGS (14)
  1. BACLOFEN [Concomitant]
     Route: 048
  2. CITALOPRAM [Concomitant]
     Route: 048
  3. ISOSORBIDE MONONITRATE [Concomitant]
     Route: 048
  4. PEPCID [Concomitant]
     Route: 048
  5. NALTREXONE HYDROCHLORIDE [Concomitant]
     Route: 048
  6. DULCOLAX [Concomitant]
  7. ZOCOR [Concomitant]
     Route: 048
  8. ATENOLOL [Concomitant]
     Route: 048
  9. PLAVIX [Concomitant]
     Route: 048
  10. CLONAZEPAM [Concomitant]
     Route: 048
  11. XENADERM [Concomitant]
  12. TYSABRI [Suspect]
     Indication: MULTIPLE SCLEROSIS
     Route: 042
     Dates: start: 20100812, end: 20100901
  13. OMEPRAZOLE [Concomitant]
     Route: 048
  14. VICODIN [Concomitant]
     Route: 048

REACTIONS (5)
  - SEPTIC ENCEPHALOPATHY [None]
  - LOCALISED INFECTION [None]
  - DEVICE RELATED INFECTION [None]
  - STAPHYLOCOCCAL SEPSIS [None]
  - LETHARGY [None]
